FAERS Safety Report 10031067 (Version 10)
Quarter: 2014Q2

REPORT INFORMATION
  Report Type: Report from Study
  Country: IL (occurrence: IL)
  Receive Date: 20140324
  Receipt Date: 20140630
  Transmission Date: 20141212
  Serious: Yes (Hospitalization, Other)
  Sender: FDA-Public Use
  Company Number: IL-BIOGENIDEC-2014BI024982

PATIENT
  Age: 59 Year
  Sex: Female

DRUGS (7)
  1. AVONEX [Suspect]
     Indication: MULTIPLE SCLEROSIS
     Route: 030
     Dates: start: 20120524
  2. AVONEX [Suspect]
     Indication: MULTIPLE SCLEROSIS
     Route: 030
     Dates: start: 20131209
  3. SIMVASTATIN [Concomitant]
  4. RAMIPRIL [Concomitant]
  5. LYRICA [Concomitant]
  6. BACLOSAL [Concomitant]
  7. ELTROXIN [Concomitant]

REACTIONS (13)
  - Amyloidosis [Unknown]
  - Plasma cell myeloma [Not Recovered/Not Resolved]
  - Cardiovascular evaluation [Unknown]
  - Investigation [Unknown]
  - Abdominal operation [Unknown]
  - Hypokalaemia [Not Recovered/Not Resolved]
  - Hypothyroidism [Unknown]
  - Essential hypertension [Unknown]
  - Gait disturbance [Not Recovered/Not Resolved]
  - Malaise [Not Recovered/Not Resolved]
  - Glomerulonephritis minimal lesion [Not Recovered/Not Resolved]
  - Glomerulonephritis membranous [Not Recovered/Not Resolved]
  - Urinary incontinence [Unknown]
